FAERS Safety Report 8937194 (Version 1)
Quarter: 2012Q4

REPORT INFORMATION
  Report Type: Spontaneous
  Country: US (occurrence: None)
  Receive Date: 20121128
  Receipt Date: 20121128
  Transmission Date: 20130627
  Serious: Yes (Hospitalization)
  Sender: FDA-Public Use
  Company Number: None

PATIENT
  Age: 67 Year
  Sex: Female
  Weight: 70 kg

DRUGS (7)
  1. RHYTHMOL [Suspect]
     Route: 048
  2. RHYTHMOL [Suspect]
     Indication: ATRIAL FIBRILLATION
     Route: 048
  3. LOPRESSOR [Concomitant]
  4. PROTONIX [Concomitant]
  5. PREMARIN [Concomitant]
  6. BENICAR [Concomitant]
  7. VIT D [Concomitant]

REACTIONS (11)
  - Chest pain [None]
  - Nausea [None]
  - Diarrhoea [None]
  - Asthenia [None]
  - Headache [None]
  - Dizziness [None]
  - Dysgeusia [None]
  - Tongue coated [None]
  - Heart rate increased [None]
  - Presyncope [None]
  - Drug intolerance [None]
